FAERS Safety Report 5026823-6 (Version None)
Quarter: 2006Q2

REPORT INFORMATION
  Report Type: 
  Country: None (occurrence: None)
  Receive Date: 20060615
  Receipt Date: 20030723
  Transmission Date: 20061013
  Serious: Yes (Other)
  Sender: FDA-Public Use
  Company Number: PHEH2003US06450

PATIENT
  Age: 82 Year
  Sex: Male
  Weight: 78.005 kg

DRUGS (10)
  1. IBUPROFEN [Concomitant]
  2. PRILOSEC [Concomitant]
  3. ASCORBIC ACID [Concomitant]
  4. SYNTHROID [Concomitant]
  5. GLEEVEC [Suspect]
     Indication: CHRONIC MYELOID LEUKAEMIA
     Dosage: 400 MG, QD
     Route: 048
     Dates: start: 20030711
  6. GLEEVEC [Suspect]
     Dosage: 200 MG, QD
     Route: 048
     Dates: start: 20030924
  7. OMEPRAZOLE [Concomitant]
     Indication: GASTROOESOPHAGEAL REFLUX DISEASE
     Dosage: UNK, QD
     Route: 048
  8. GLEEVEC [Suspect]
     Dosage: 300 MG, QD
     Route: 048
     Dates: start: 20050301
  9. GLEEVEC [Suspect]
     Dosage: 200 MG, QD
     Route: 048
     Dates: start: 20060301
  10. GLEEVEC [Suspect]
     Dosage: 300 MG, QD
     Route: 048
     Dates: start: 20060602

REACTIONS (18)
  - ABASIA [None]
  - ABDOMINAL PAIN [None]
  - ABDOMINAL PAIN UPPER [None]
  - BLOOD AMYLASE INCREASED [None]
  - CHEST PAIN [None]
  - DIARRHOEA [None]
  - DYSPEPSIA [None]
  - HIATUS HERNIA [None]
  - LIPASE INCREASED [None]
  - MYALGIA [None]
  - OEDEMA PERIPHERAL [None]
  - ORBITAL OEDEMA [None]
  - PANCREATITIS [None]
  - PERIORBITAL OEDEMA [None]
  - PRURITUS GENERALISED [None]
  - RASH PRURITIC [None]
  - VOMITING [None]
  - WHITE BLOOD CELL COUNT INCREASED [None]
